FAERS Safety Report 10987251 (Version 1)
Quarter: 2015Q1

REPORT INFORMATION
  Report Type: Spontaneous
  Country: US (occurrence: None)
  Receive Date: 20150325
  Receipt Date: 20150325
  Transmission Date: 20150721
  Serious: No
  Sender: FDA-Public Use
  Company Number: SP08938

PATIENT
  Sex: Male
  Weight: 74.84 kg

DRUGS (3)
  1. FULYZAQ [Suspect]
     Active Substance: CROFELEMER
     Indication: DIARRHOEA
     Dosage: 250 MG (125 MG,2 IN 1 D)
     Route: 048
     Dates: start: 2012
  2. LOMOTIL [Concomitant]
     Active Substance: ATROPINE SULFATE\DIPHENOXYLATE HYDROCHLORIDE
  3. DETROL [Concomitant]
     Active Substance: TOLTERODINE TARTRATE

REACTIONS (1)
  - Drug effect incomplete [None]
